FAERS Safety Report 23491513 (Version 1)
Quarter: 2024Q1

REPORT INFORMATION
  Report Type: Report from Study
  Country: IT (occurrence: IT)
  Receive Date: 20240207
  Receipt Date: 20240207
  Transmission Date: 20240410
  Serious: Yes (Hospitalization)
  Sender: FDA-Public Use
  Company Number: None

PATIENT
  Age: 55 Year
  Sex: Female

DRUGS (1)
  1. AMOXICILLIN [Suspect]
     Active Substance: AMOXICILLIN
     Indication: Oropharyngeal pain
     Dosage: UNIT OF MEASUREMENT: GRAMS?ADMINISTRATION FREQUENCY: DAILY /AMOXICILLINA
     Route: 048
     Dates: start: 20230831, end: 20230902

REACTIONS (2)
  - Erythema [Recovered/Resolved]
  - Anaesthesia oral [Recovered/Resolved]

NARRATIVE: CASE EVENT DATE: 20230902
